FAERS Safety Report 8219027-7 (Version None)
Quarter: 2012Q1

REPORT INFORMATION
  Report Type: 
  Country: None (occurrence: None)
  Receive Date: 20120319
  Receipt Date: 20120314
  Transmission Date: 20120608
  Serious: Yes (Other)
  Sender: FDA-Public Use
  Company Number: AU-PFIZER INC-2012068889

PATIENT
  Age: 36 Year
  Sex: Female

DRUGS (6)
  1. PRISTIQ [Suspect]
     Indication: DEPRESSION
     Dosage: 50 MG, 1X/DAY
     Dates: start: 20110112
  2. ENDEP [Concomitant]
     Dosage: 25 MG, AT NIGHT
     Dates: start: 20080701, end: 20110101
  3. HYDROMORPHONE HCL [Concomitant]
     Indication: PAIN
     Dosage: 8 MG, 1X/DAY
     Dates: start: 20100701
  4. MAXOLON [Concomitant]
     Indication: VOMITING
     Dosage: 10 MG, AS NEEDED
     Dates: start: 20110201
  5. PRISTIQ [Suspect]
     Indication: ANXIETY
  6. DILAUDID [Concomitant]
     Indication: PAIN
     Dosage: 2 MG, AS NEEDED
     Dates: start: 20100601

REACTIONS (5)
  - PREMATURE RUPTURE OF MEMBRANES [None]
  - VOMITING [None]
  - CHORIOAMNIONITIS [None]
  - BACK PAIN [None]
  - DEPRESSION [None]
